FAERS Safety Report 5635087-1 (Version None)
Quarter: 2008Q1

REPORT INFORMATION
  Report Type: 
  Country: None (occurrence: None)
  Receive Date: 20080222
  Receipt Date: 20080212
  Transmission Date: 20080703
  Serious: Yes (Hospitalization, Other)
  Sender: FDA-Public Use
  Company Number: JP-PFIZER INC-2006118698

PATIENT
  Age: 82 Year
  Sex: Male

DRUGS (2)
  1. CABERGOLINE [Suspect]
     Indication: PARKINSON'S DISEASE
     Dosage: DAILY DOSE:2MG
     Route: 048
  2. CARBIDOPA AND LEVODOPA [Concomitant]
     Indication: PARKINSON'S DISEASE
     Dosage: DAILY DOSE:300MG
     Route: 048

REACTIONS (2)
  - HEART VALVE INCOMPETENCE [None]
  - SICK SINUS SYNDROME [None]
